FAERS Safety Report 4937292-6 (Version None)
Quarter: 2006Q1

REPORT INFORMATION
  Report Type: 
  Country: None (occurrence: None)
  Receive Date: 20060307
  Receipt Date: 20060307
  Transmission Date: 20060701
  Serious: Yes (Death)
  Sender: FDA-Public Use
  Company Number: None

PATIENT
  Sex: Female
  Weight: 76.5 kg

DRUGS (3)
  1. TAXOL [Suspect]
     Indication: BREAST CANCER
     Dosage: 450 MG
     Dates: start: 20030806
  2. DOXORUBICIN HCL [Suspect]
     Dates: start: 20030430
  3. CYCLOPHOSPHAMIDE [Suspect]
     Dates: start: 20030430

REACTIONS (9)
  - CARDIAC ARREST [None]
  - CHILLS [None]
  - CONTUSION [None]
  - DIZZINESS [None]
  - DYSPNOEA [None]
  - FALL [None]
  - LOSS OF CONSCIOUSNESS [None]
  - NASOPHARYNGITIS [None]
  - PYREXIA [None]
